FAERS Safety Report 22119657 (Version 1)
Quarter: 2023Q1

REPORT INFORMATION
  Report Type: Spontaneous
  Country: US (occurrence: None)
  Receive Date: 20230321
  Receipt Date: 20230321
  Transmission Date: 20230418
  Serious: No
  Sender: FDA-Public Use
  Company Number: US-ROCHE-3028117

PATIENT
  Sex: Male

DRUGS (12)
  1. ERIVEDGE [Suspect]
     Active Substance: VISMODEGIB
     Indication: Basal cell carcinoma
     Route: 048
     Dates: start: 20220119
  2. ELIQUIS [Concomitant]
     Active Substance: APIXABAN
  3. TYLENOL [Concomitant]
     Active Substance: ACETAMINOPHEN
  4. DILTIAZEM [Concomitant]
     Active Substance: DILTIAZEM
  5. DULOXETINE HYDROCHLORIDE [Concomitant]
     Active Substance: DULOXETINE HYDROCHLORIDE
  6. FINASTERIDE [Concomitant]
     Active Substance: FINASTERIDE
  7. GABAPENTIN [Concomitant]
     Active Substance: GABAPENTIN
  8. GLIMEPIRIDE [Concomitant]
     Active Substance: GLIMEPIRIDE
  9. LISINOPRIL [Concomitant]
     Active Substance: LISINOPRIL
  10. METFORMIN HYDROCHLORIDE [Concomitant]
     Active Substance: METFORMIN HYDROCHLORIDE
  11. PRAVASTATIN [Concomitant]
     Active Substance: PRAVASTATIN
  12. TAMSULOSIN [Concomitant]
     Active Substance: TAMSULOSIN

REACTIONS (1)
  - Rhinorrhoea [Unknown]
